FAERS Safety Report 4583537-4 (Version None)
Quarter: 2005Q1

REPORT INFORMATION
  Report Type: 
  Country: None (occurrence: None)
  Receive Date: 20050211
  Receipt Date: 20050202
  Transmission Date: 20050727
  Serious: Yes (Hospitalization)
  Sender: FDA-Public Use
  Company Number: 2005-02-0066

PATIENT
  Age: 86 Year
  Sex: Female

DRUGS (5)
  1. DIPROSONE [Suspect]
     Dosage: TOP-DERM
     Route: 061
     Dates: end: 20041214
  2. DIPROSONE [Suspect]
     Dosage: TOP-DERM
     Route: 061
     Dates: end: 20041214
  3. ALDACTAZINE TABLETS [Suspect]
     Dosage: 1 QD ORAL
     Route: 048
     Dates: end: 20041214
  4. HYPERIUM (RILMENIDINE) TABLETS [Concomitant]
  5. ATARAX [Concomitant]

REACTIONS (3)
  - BLOOD PRESSURE SYSTOLIC INCREASED [None]
  - GINGIVAL BLEEDING [None]
  - THROMBOCYTOPENIC PURPURA [None]
